FAERS Safety Report 24147755 (Version 1)
Quarter: 2024Q3

REPORT INFORMATION
  Report Type: Spontaneous
  Country: US (occurrence: None)
  Receive Date: 20240727
  Receipt Date: 20240727
  Transmission Date: 20241017
  Serious: Yes (unspecified)
  Sender: Public
  Company Number: None

PATIENT
  Age: 59 Year
  Sex: Male
  Weight: 93.15 kg

DRUGS (1)
  1. TECHNETIUM TC-99M [Suspect]
     Active Substance: TECHNETIUM TC-99M
     Indication: Scan myocardial perfusion
     Route: 042

REACTIONS (2)
  - Dyspnoea [None]
  - Gastrointestinal disorder [None]

NARRATIVE: CASE EVENT DATE: 20240626
